FAERS Safety Report 19593204 (Version 1)
Quarter: 2021Q3

REPORT INFORMATION
  Report Type: Spontaneous
  Country: MX (occurrence: MX)
  Receive Date: 20210722
  Receipt Date: 20210722
  Transmission Date: 20211014
  Serious: Yes (Hospitalization, Other)
  Sender: FDA-Public Use
  Company Number: MX-SUN PHARMACEUTICAL INDUSTRIES LTD-2021R1-304738

PATIENT
  Age: 75 Year
  Sex: Female

DRUGS (1)
  1. FLECAINIDE ACETATE. [Suspect]
     Active Substance: FLECAINIDE ACETATE
     Indication: SUPRAVENTRICULAR EXTRASYSTOLES
     Dosage: 100 MILLIGRAM, BID
     Route: 065

REACTIONS (3)
  - Syncope [Unknown]
  - Therapy non-responder [Unknown]
  - Toxicity to various agents [Recovered/Resolved]
